FAERS Safety Report 5899680-3 (Version None)
Quarter: 2008Q3

REPORT INFORMATION
  Report Type: 
  Country: None (occurrence: None)
  Receive Date: 20080926
  Receipt Date: 20080918
  Transmission Date: 20090109
  Serious: Yes (Hospitalization)
  Sender: FDA-Public Use
  Company Number: JP-ASTRAZENECA-2008AP06935

PATIENT
  Age: 76 Year
  Sex: Male

DRUGS (7)
  1. MEROPENEM [Suspect]
     Indication: URINARY TRACT INFECTION
     Route: 042
     Dates: start: 20080621, end: 20080628
  2. CIPROFLOXACIN HCL [Suspect]
     Indication: PYELONEPHRITIS ACUTE
     Route: 042
     Dates: start: 20080610, end: 20080621
  3. AMARYL [Concomitant]
     Indication: DIABETES MELLITUS
     Route: 048
     Dates: start: 20080517
  4. MUCOSTA [Concomitant]
     Indication: GASTRITIS
     Route: 048
     Dates: start: 20080529
  5. ASPIRIN [Concomitant]
     Indication: CEREBRAL INFARCTION
     Route: 048
     Dates: start: 20080530
  6. OMEPRAZOLE [Concomitant]
     Indication: GASTRITIS
     Route: 048
     Dates: start: 20080530
  7. PLETAL [Concomitant]
     Indication: CEREBRAL INFARCTION
     Route: 048
     Dates: start: 20080603

REACTIONS (1)
  - ENTEROCOLITIS HAEMORRHAGIC [None]
